FAERS Safety Report 8594288 (Version 2)
Quarter: 2012Q4

REPORT INFORMATION
  Report Type: 
  Country: BR (occurrence: BR)
  Receive Date: 20120604
  Receipt Date: 20121101
  Transmission Date: 20130627
  Serious: Yes (Hospitalization)
  Sender: FDA-Public Use
  Company Number: BR-ASTRAZENECA-2012SE34268

PATIENT
  Age: 75 Year
  Sex: Female
  Weight: 46 kg

DRUGS (12)
  1. NEXIUM [Suspect]
     Indication: GASTROOESOPHAGEAL REFLUX DISEASE
     Route: 048
     Dates: end: 201205
  2. NEXIUM [Interacting]
     Indication: HIATUS HERNIA
     Route: 048
     Dates: end: 201205
  3. NEXIUM [Interacting]
     Indication: GASTROOESOPHAGEAL REFLUX DISEASE
     Route: 048
  4. NEXIUM [Interacting]
     Indication: HIATUS HERNIA
     Route: 048
  5. CRESTOR [Interacting]
     Indication: BLOOD CHOLESTEROL INCREASED
     Route: 048
     Dates: end: 20121008
  6. ALPRAZOLAM [Interacting]
     Indication: DEPRESSION
     Route: 048
  7. OMEPRAZOLE [Concomitant]
     Indication: GASTRITIS
  8. OMEPRAZOLE [Concomitant]
     Indication: GASTROOESOPHAGEAL REFLUX DISEASE
  9. OMEPRAZOLE [Concomitant]
     Indication: HIATUS HERNIA
  10. PARIET [Concomitant]
     Indication: GASTRITIS
  11. PARIET [Concomitant]
     Indication: GASTROOESOPHAGEAL REFLUX DISEASE
  12. PARIET [Concomitant]
     Indication: HIATUS HERNIA

REACTIONS (6)
  - Drug interaction [Not Recovered/Not Resolved]
  - Intervertebral disc protrusion [Recovering/Resolving]
  - Weight decreased [Unknown]
  - Pain in extremity [Unknown]
  - Vomiting [Unknown]
  - Insomnia [Unknown]
